FAERS Safety Report 4384752-5 (Version None)
Quarter: 2004Q2

REPORT INFORMATION
  Report Type: 
  Country: None (occurrence: None)
  Receive Date: 20040624
  Receipt Date: 20040624
  Transmission Date: 20050107
  Serious: Yes (Hospitalization)
  Sender: FDA-Public Use
  Company Number: None

PATIENT
  Age: 61 Year
  Sex: Male
  Weight: 118.6 kg

DRUGS (12)
  1. METFORMIN HCL [Suspect]
     Indication: DIABETES MELLITUS
     Dosage: 100 MG TWICE DAIL ORAL
     Route: 048
     Dates: start: 20030918, end: 20040518
  2. ALBUTEROL/IPRATROPIUM INH [Concomitant]
  3. ASPIRIN [Concomitant]
  4. FOLIC ACID [Concomitant]
  5. HUMULIN 70/30 [Concomitant]
  6. LOPERAMIDE HCL [Concomitant]
  7. MAGNESIUM GLUCONATE [Concomitant]
  8. METOPROLOL TARTRATE [Concomitant]
  9. MULTI-VITAMIN [Concomitant]
  10. OMEPRAZOLE [Concomitant]
  11. SPIRONOLACTONE [Concomitant]
  12. THIAMINE HCL [Concomitant]

REACTIONS (5)
  - ALCOHOL USE [None]
  - BLOOD CREATININE INCREASED [None]
  - HEPATIC FUNCTION ABNORMAL [None]
  - METABOLIC ACIDOSIS [None]
  - RENAL IMPAIRMENT [None]
